FAERS Safety Report 13555817 (Version 2)
Quarter: 2017Q2

REPORT INFORMATION
  Report Type: Spontaneous
  Country: GB (occurrence: GB)
  Receive Date: 20170517
  Receipt Date: 20170615
  Transmission Date: 20170830
  Serious: Yes (Hospitalization, Other)
  Sender: FDA-Public Use
  Company Number: GB-ALEXION PHARMACEUTICALS INC.-A201704675

PATIENT
  Age: 14 Year
  Sex: Female

DRUGS (4)
  1. DESFERRIOXAMINE [Concomitant]
     Active Substance: DEFEROXAMINE MESYLATE
     Indication: CHELATION THERAPY
     Route: 058
  2. SOLIRIS [Suspect]
     Active Substance: ECULIZUMAB
     Indication: OFF LABEL USE
  3. SOLIRIS [Suspect]
     Active Substance: ECULIZUMAB
     Indication: PAROXYSMAL NOCTURNAL HAEMOGLOBINURIA
     Dosage: UNK
     Route: 042
     Dates: start: 20160926
  4. SOLIRIS [Suspect]
     Active Substance: ECULIZUMAB
     Indication: THROMBOTIC MICROANGIOPATHY
     Dosage: UNK
     Route: 065
     Dates: start: 20170406

REACTIONS (15)
  - Vaginal haemorrhage [Recovered/Resolved]
  - Fluid imbalance [Not Recovered/Not Resolved]
  - Post procedural haematoma [Recovered/Resolved]
  - Back pain [Recovered/Resolved]
  - Blood creatinine abnormal [Not Recovered/Not Resolved]
  - Delayed engraftment [Unknown]
  - Thrombotic microangiopathy [Unknown]
  - Pulmonary haemorrhage [Unknown]
  - Renal impairment [Unknown]
  - Oedema peripheral [Not Recovered/Not Resolved]
  - Microangiopathy [Unknown]
  - Renal tubular acidosis [Recovered/Resolved]
  - Haematuria [Not Recovered/Not Resolved]
  - Oedema [Recovered/Resolved]
  - Urinary tract infection [Recovered/Resolved]

NARRATIVE: CASE EVENT DATE: 20160606
